FAERS Safety Report 5338546-4 (Version None)
Quarter: 2007Q2

REPORT INFORMATION
  Report Type: 
  Country: None (occurrence: None)
  Receive Date: 20070322
  Receipt Date: 20060724
  Transmission Date: 20071010
  Serious: Yes (Other)
  Sender: FDA-Public Use
  Company Number: 200612428BCC

PATIENT
  Age: 50 Year
  Sex: Female
  Weight: 60.3284 kg

DRUGS (5)
  1. ALEVE (CAPLET) [Suspect]
     Indication: SPONDYLITIS
     Dosage: SEE IMAGE
     Route: 048
     Dates: start: 20060201
  2. ALEVE (CAPLET) [Suspect]
     Indication: SPONDYLITIS
     Dosage: SEE IMAGE
     Route: 048
     Dates: start: 20060301
  3. COPAXONE [Concomitant]
  4. BACLOFEN [Concomitant]
  5. NEXIUM [Concomitant]

REACTIONS (3)
  - FEELING ABNORMAL [None]
  - ULCER HAEMORRHAGE [None]
  - UNEVALUABLE EVENT [None]
